FAERS Safety Report 8151272-1 (Version None)
Quarter: 2012Q1

REPORT INFORMATION
  Report Type: 
  Country: None (occurrence: None)
  Receive Date: 20120220
  Receipt Date: 20120216
  Transmission Date: 20120608
  Serious: Yes (Other)
  Sender: FDA-Public Use
  Company Number: BE-BAYER-2012-015607

PATIENT
  Age: 6 Month
  Sex: Female
  Weight: 1.33 kg

DRUGS (2)
  1. MOXIFLOXACIN [Suspect]
     Route: 064
  2. MOXIFLOXACIN [Suspect]
     Route: 064

REACTIONS (2)
  - PLACENTAL TRANSFUSION SYNDROME [None]
  - PREMATURE BABY [None]
